FAERS Safety Report 7563916-3 (Version None)
Quarter: 2011Q2

REPORT INFORMATION
  Report Type: 
  Country: None (occurrence: None)
  Receive Date: 20110622
  Receipt Date: 20110621
  Transmission Date: 20111010
  Serious: Yes (Death)
  Sender: FDA-Public Use
  Company Number: CHPA2011US08275

PATIENT
  Age: 92 Year
  Sex: Male

DRUGS (1)
  1. MAALOX ANTACID/ANTIGAS RS LIQ COOL MINT [Suspect]
     Indication: DYSPEPSIA
     Dosage: UNK, FROM THE BOTTLE
     Route: 048

REACTIONS (3)
  - WRONG TECHNIQUE IN DRUG USAGE PROCESS [None]
  - INCORRECT DOSE ADMINISTERED [None]
  - DEATH [None]
